FAERS Safety Report 6110328-5 (Version None)
Quarter: 2009Q1

REPORT INFORMATION
  Report Type: 
  Country: None (occurrence: None)
  Receive Date: 20090310
  Receipt Date: 20090304
  Transmission Date: 20090719
  Serious: Yes (Other)
  Sender: FDA-Public Use
  Company Number: US-PFIZER INC-2009178850

PATIENT
  Sex: Female
  Weight: 52.154 kg

DRUGS (2)
  1. CELEBREX [Suspect]
     Indication: BACK PAIN
     Dosage: 200 MG, 2X/DAY
     Route: 048
     Dates: start: 20090204
  2. TIZANIDINE HCL [Concomitant]
     Dosage: UNK

REACTIONS (6)
  - BODY TEMPERATURE FLUCTUATION [None]
  - INFERTILITY FEMALE [None]
  - MENORRHAGIA [None]
  - MENSTRUATION IRREGULAR [None]
  - NON-CONSUMMATION [None]
  - VAGINAL DISORDER [None]
